FAERS Safety Report 4391575-X (Version None)
Quarter: 2004Q3

REPORT INFORMATION
  Report Type: 
  Country: None (occurrence: None)
  Receive Date: 20040701
  Receipt Date: 20040611
  Transmission Date: 20050211
  Serious: Yes (Other)
  Sender: FDA-Public Use
  Company Number: US_0406103671

PATIENT
  Age: 74 Year
  Sex: Female

DRUGS (2)
  1. EVISTA [Suspect]
  2. VITAMIN D [Concomitant]

REACTIONS (5)
  - HIP ARTHROPLASTY [None]
  - LUMBAR VERTEBRAL FRACTURE [None]
  - SPINAL COMPRESSION FRACTURE [None]
  - THORACIC VERTEBRAL FRACTURE [None]
  - UPPER LIMB FRACTURE [None]
